FAERS Safety Report 7654719-X (Version None)
Quarter: 2011Q3

REPORT INFORMATION
  Report Type: 
  Country: None (occurrence: None)
  Receive Date: 20110804
  Receipt Date: 20110120
  Transmission Date: 20111222
  Serious: Yes (Death)
  Sender: FDA-Public Use
  Company Number: 2007BI002558

PATIENT
  Age: 37 Year
  Sex: Female
  Weight: 102 kg

DRUGS (12)
  1. TRILEPTAL [Concomitant]
     Indication: PRODUCT USED FOR UNKNOWN INDICATION
     Dates: end: 20070111
  2. PERCOCET [Concomitant]
     Dates: end: 20070111
  3. FENTANYL-100 [Concomitant]
     Indication: PAIN
     Dates: end: 20070111
  4. DETROL LA [Concomitant]
     Indication: URINARY INCONTINENCE
     Dates: end: 20070111
  5. KLONOPIN [Concomitant]
     Indication: PRODUCT USED FOR UNKNOWN INDICATION
     Dates: end: 20070111
  6. LYRICA [Concomitant]
     Indication: PAIN
     Dates: end: 20070111
  7. LORTAB [Concomitant]
     Indication: PAIN
     Dates: end: 20070111
  8. SEROQUEL [Concomitant]
     Indication: PRODUCT USED FOR UNKNOWN INDICATION
     Dates: end: 20070111
  9. TYSABRI [Suspect]
     Indication: MULTIPLE SCLEROSIS
     Route: 042
     Dates: start: 20070111, end: 20070111
  10. PHENERGAN HCL [Concomitant]
     Indication: NAUSEA
     Dates: end: 20070111
  11. WELLBUTRIN [Concomitant]
     Dates: end: 20070111
  12. PROZAC [Concomitant]
     Dates: end: 20070111

REACTIONS (2)
  - MULTIPLE SCLEROSIS [None]
  - CARDIAC ARREST [None]
